FAERS Safety Report 17958230 (Version 1)
Quarter: 2020Q2

REPORT INFORMATION
  Report Type: Spontaneous
  Country: MX (occurrence: MX)
  Receive Date: 20200629
  Receipt Date: 20200629
  Transmission Date: 20200714
  Serious: Yes (Other)
  Sender: FDA-Public Use
  Company Number: MX-PFIZER INC-2020211154

PATIENT
  Age: 47 Year
  Sex: Female

DRUGS (5)
  1. AZULFIDINA [Suspect]
     Active Substance: SULFASALAZINE
     Indication: RHEUMATOID ARTHRITIS
     Dosage: 1 G, 3X/DAY
     Route: 048
     Dates: start: 2016
  2. LEVOTHYROXINE. [Concomitant]
     Active Substance: LEVOTHYROXINE
     Indication: HYPOTHYROIDISM
     Dosage: 1.5 DF, 1X/DAY
     Route: 048
  3. ARALEN [CHLOROQUINE HYDROCHLORIDE] [Concomitant]
     Active Substance: CHLOROQUINE HYDROCHLORIDE
     Indication: RHEUMATOID ARTHRITIS
  4. METFORMIN [Concomitant]
     Active Substance: METFORMIN HYDROCHLORIDE
     Indication: HYPERTENSION
     Dosage: 1 TABLET IN THE MORNING AND 1 TABLET AT NIGHT
     Route: 048
  5. TRIXILEM [METHOTREXATE] [Concomitant]
     Indication: RHEUMATOID ARTHRITIS
     Dosage: UNK
     Dates: end: 2018

REACTIONS (1)
  - Glaucoma [Unknown]

NARRATIVE: CASE EVENT DATE: 2018
